FAERS Safety Report 8143971-2 (Version None)
Quarter: 2012Q1

REPORT INFORMATION
  Report Type: 
  Country: None (occurrence: None)
  Receive Date: 20120217
  Receipt Date: 20120217
  Transmission Date: 20120608
  Serious: Yes (Death)
  Sender: FDA-Public Use
  Company Number: None

PATIENT
  Sex: Male
  Weight: 92 kg

DRUGS (2)
  1. ONCASPAR [Suspect]
     Indication: NON-HODGKIN'S LYMPHOMA
     Dosage: 5,500 UNITS
     Route: 030
     Dates: start: 20110520, end: 20111111
  2. ONCASPAR [Suspect]
     Indication: T-CELL LYMPHOMA
     Dosage: 5,500 UNITS
     Route: 030
     Dates: start: 20110520, end: 20111111

REACTIONS (11)
  - PANCREATIC NECROSIS [None]
  - MULTI-ORGAN FAILURE [None]
  - SHOCK [None]
  - VENTRICULAR TACHYCARDIA [None]
  - PANCREATITIS HAEMORRHAGIC [None]
  - RENAL FAILURE ACUTE [None]
  - CONSTIPATION [None]
  - HYPOTENSION [None]
  - PLEURAL EFFUSION [None]
  - CARDIOMEGALY [None]
  - PANCREATITIS ACUTE [None]
